FAERS Safety Report 9841303 (Version 1)
Quarter: 2013Q4

REPORT INFORMATION
  Report Type: Spontaneous
  Country: US (occurrence: None)
  Receive Date: 20131211
  Receipt Date: 20131211
  Transmission Date: 20140711
  Serious: Yes (Hospitalization)
  Sender: FDA-Public Use
  Company Number: SPV1-2008-02560

PATIENT
  Age: 10 Year
  Sex: Male

DRUGS (3)
  1. ELAPRASE (IDUSULFASE) CONCENTRATE FOR SOLUTION FOR INFUSION [Suspect]
     Indication: MUCOPOLYSACCHARIDOSIS II
     Route: 041
     Dates: start: 20060913
  2. DIPHENHYDRAMINE (DIPHENHYDRAMINE) [Concomitant]
  3. ROZEREM (RAMELTEON) [Concomitant]

REACTIONS (2)
  - Hypertension [None]
  - Gastrointestinal disorder [None]
